FAERS Safety Report 12364568 (Version 2)
Quarter: 2016Q2

REPORT INFORMATION
  Report Type: Spontaneous
  Country: DE (occurrence: DE)
  Receive Date: 20160513
  Receipt Date: 20160603
  Transmission Date: 20160815
  Serious: Yes (Other)
  Sender: FDA-Public Use
  Company Number: DE-JNJFOC-20160502763

PATIENT
  Age: 35 Year
  Sex: Female
  Weight: 70 kg

DRUGS (2)
  1. METHOTREXATE [Concomitant]
     Active Substance: METHOTREXATE
     Route: 048
  2. SIMPONI [Suspect]
     Active Substance: GOLIMUMAB
     Indication: RHEUMATOID ARTHRITIS
     Route: 058
     Dates: start: 20160318

REACTIONS (3)
  - Incorrect dose administered [Unknown]
  - Angina pectoris [Unknown]
  - Off label use [Unknown]

NARRATIVE: CASE EVENT DATE: 20160318
